FAERS Safety Report 4727217-0 (Version None)
Quarter: 2005Q3

REPORT INFORMATION
  Report Type: 
  Country: None (occurrence: None)
  Receive Date: 20050728
  Receipt Date: 20050715
  Transmission Date: 20060218
  Serious: Yes (Hospitalization)
  Sender: FDA-Public Use
  Company Number: 200512018EU

PATIENT
  Age: 34 Year
  Sex: Female

DRUGS (1)
  1. FUROSEMIDE [Suspect]
     Dosage: DOSE: UNK

REACTIONS (4)
  - ABDOMINAL HAEMATOMA [None]
  - POST PROCEDURAL COMPLICATION [None]
  - PULMONARY EMBOLISM [None]
  - RIGHT VENTRICULAR FAILURE [None]
